FAERS Safety Report 8247396-0 (Version None)
Quarter: 2012Q1

REPORT INFORMATION
  Report Type: 
  Country: None (occurrence: None)
  Receive Date: 20120330
  Receipt Date: 20120323
  Transmission Date: 20120608
  Serious: Yes (Hospitalization, Other)
  Sender: FDA-Public Use
  Company Number: FR-PFIZER INC-2011261866

PATIENT
  Age: 74 Year
  Sex: Female

DRUGS (10)
  1. XANAX [Suspect]
     Dosage: 0.5 MG, 1X/DAY
     Route: 048
  2. ATENOLOL [Concomitant]
     Dosage: UNK
  3. LISINOPRIL [Suspect]
     Dosage: 1 DF, 1X/DAY
     Route: 048
  4. LORAZEPAM [Suspect]
     Dosage: 2.5 MG, 2X/DAY
     Route: 048
  5. LEPTICUR [Suspect]
     Dosage: 10 MG, 2X/DAY
     Route: 048
  6. HALDOL [Suspect]
     Dosage: UNK
  7. ESIDRIX [Suspect]
     Dosage: 12.5 MG, 1X/DAY
     Route: 048
  8. ZOLPIDEM TARTRATE [Concomitant]
     Dosage: UNK
  9. NEXIUM [Suspect]
     Dosage: 20 MG, 1X/DAY
     Route: 048
  10. DEPAKOTE [Suspect]
     Dosage: 500 MG, 2X/DAY
     Route: 048

REACTIONS (5)
  - HYPOTHERMIA [None]
  - NUCLEAR MAGNETIC RESONANCE IMAGING ABNORMAL [None]
  - ESCHERICHIA TEST POSITIVE [None]
  - BRADYCARDIA [None]
  - FALL [None]
